FAERS Safety Report 4314533-X (Version None)
Quarter: 2004Q1

REPORT INFORMATION
  Report Type: 
  Country: None (occurrence: None)
  Receive Date: 20040308
  Receipt Date: 20040223
  Transmission Date: 20041129
  Serious: Yes (Hospitalization)
  Sender: FDA-Public Use
  Company Number: 2004CG00374

PATIENT
  Age: 52 Year
  Sex: Female

DRUGS (5)
  1. ZESTRIL [Suspect]
     Dosage: 1 DF QD PO
     Route: 048
     Dates: start: 20010101
  2. ISOPTIN [Suspect]
     Dosage: 1 DF QD PO
     Route: 048
     Dates: start: 20040108, end: 20040119
  3. XANAX [Suspect]
     Dosage: 1.5 DF QD PO
     Route: 048
     Dates: start: 20030101
  4. DIOSMINE [Suspect]
     Dosage: 2 DF QD PO
     Route: 048
     Dates: start: 20010101
  5. DEROXAT [Suspect]
     Dosage: 1 DF QD PO
     Route: 048
     Dates: start: 20020101

REACTIONS (1)
  - TOXIC SKIN ERUPTION [None]
